FAERS Safety Report 6531944-2 (Version None)
Quarter: 2010Q1

REPORT INFORMATION
  Report Type: 
  Country: None (occurrence: None)
  Receive Date: 20100107
  Receipt Date: 20100107
  Transmission Date: 20100710
  Serious: No
  Sender: FDA-Public Use
  Company Number: None

PATIENT
  Sex: Male

DRUGS (1)
  1. ACETAMINOPHEN AND CODEINE PHOSPHATE [Suspect]
     Dosage: 1 TAB EVERY 4 HRS PO
     Route: 048
     Dates: start: 20091111, end: 20091118

REACTIONS (1)
  - DRUG HYPERSENSITIVITY [None]
